FAERS Safety Report 16229178 (Version 1)
Quarter: 2019Q2

REPORT INFORMATION
  Report Type: Spontaneous
  Country: US (occurrence: US)
  Receive Date: 20190423
  Receipt Date: 20190423
  Transmission Date: 20190711
  Serious: No
  Sender: FDA-Public Use
  Company Number: US-ELI_LILLY_AND_COMPANY-US201904003725

PATIENT
  Sex: Female

DRUGS (4)
  1. TOPAMAX [Concomitant]
     Active Substance: TOPIRAMATE
     Indication: HEADACHE
     Dosage: UNK, UNKNOWN
     Route: 065
  2. EMGALITY [Suspect]
     Active Substance: GALCANEZUMAB-GNLM
     Dosage: UNK, MONTHLY (1/M)
     Route: 065
     Dates: start: 20190404
  3. EMGALITY [Suspect]
     Active Substance: GALCANEZUMAB-GNLM
     Indication: MIGRAINE PROPHYLAXIS
     Dosage: UNK, MONTHLY (1/M)
     Route: 065
     Dates: start: 201812
  4. EMGALITY [Suspect]
     Active Substance: GALCANEZUMAB-GNLM
     Dosage: UNK, MONTHLY (1/M)
     Route: 065

REACTIONS (3)
  - Injection site pain [Recovered/Resolved]
  - Product dose omission [Unknown]
  - Injection site erythema [Unknown]

NARRATIVE: CASE EVENT DATE: 201812
